FAERS Safety Report 9473807 (Version 1)
Quarter: 2013Q3

REPORT INFORMATION
  Report Type: Spontaneous
  Country: US (occurrence: US)
  Receive Date: 20130823
  Receipt Date: 20130823
  Transmission Date: 20140515
  Serious: No
  Sender: FDA-Public Use
  Company Number: US-BRISTOL-MYERS SQUIBB COMPANY-17003146

PATIENT
  Age: 78 Year
  Sex: Male

DRUGS (6)
  1. SPRYCEL [Suspect]
     Indication: LEUKAEMIA
     Dates: start: 20120925
  2. GLEEVEC [Concomitant]
  3. HYDROCHLOROTHIAZIDE [Concomitant]
  4. DILTIAZEM HCL [Concomitant]
  5. LOSARTAN [Concomitant]
  6. LORAZEPAM [Concomitant]

REACTIONS (4)
  - Palpitations [Unknown]
  - Dizziness [Unknown]
  - Headache [Unknown]
  - Eye swelling [Unknown]
